FAERS Safety Report 5703772-9 (Version None)
Quarter: 2008Q2

REPORT INFORMATION
  Report Type: 
  Country: None (occurrence: None)
  Receive Date: 20080413
  Receipt Date: 20080413
  Transmission Date: 20081010
  Serious: Yes (Other)
  Sender: FDA-Public Use
  Company Number: US-ABBOTT-08P-163-0437114-00

PATIENT
  Sex: Male
  Weight: 75.818 kg

DRUGS (2)
  1. HUMIRA [Suspect]
     Indication: RHEUMATOID ARTHRITIS
     Route: 058
     Dates: start: 20070101
  2. HUMIRA [Suspect]
     Dates: end: 20080101

REACTIONS (10)
  - ABASIA [None]
  - ARTHRALGIA [None]
  - DIPLOPIA [None]
  - DIZZINESS [None]
  - INFLAMMATION [None]
  - LIGAMENT RUPTURE [None]
  - OEDEMA PERIPHERAL [None]
  - PAIN IN EXTREMITY [None]
  - ROTATOR CUFF REPAIR [None]
  - VISION BLURRED [None]
